FAERS Safety Report 25739026 (Version 1)
Quarter: 2025Q3

REPORT INFORMATION
  Report Type: Spontaneous
  Country: IN (occurrence: IN)
  Receive Date: 20250829
  Receipt Date: 20250829
  Transmission Date: 20251021
  Serious: Yes (Other)
  Sender: ADAPTIS PHARMA INDIA
  Company Number: IN-Adaptis Pharma Private Limited-2183446

PATIENT
  Age: 48 Year
  Sex: Male
  Weight: 104 kg

DRUGS (2)
  1. PREGABALIN [Suspect]
     Active Substance: PREGABALIN
     Indication: Sleep disorder
  2. PREGABALIN [Suspect]
     Active Substance: PREGABALIN
     Indication: Seizure

REACTIONS (14)
  - Intentional overdose [Unknown]
  - Product use in unapproved indication [Unknown]
  - Wheezing [Recovered/Resolved]
  - Generalised oedema [Recovered/Resolved]
  - Weight increased [Unknown]
  - Loss of personal independence in daily activities [Unknown]
  - Confusional state [Recovered/Resolved]
  - Dyspnoea [Recovered/Resolved]
  - Gastrointestinal disorder [Recovered/Resolved]
  - Hypoaesthesia [Recovered/Resolved]
  - Asthenia [Recovered/Resolved]
  - Headache [Recovered/Resolved]
  - Irritability [Recovered/Resolved]
  - Substance abuse [Unknown]
